FAERS Safety Report 4549259-0 (Version None)
Quarter: 2004Q4

REPORT INFORMATION
  Report Type: 
  Country: None (occurrence: None)
  Receive Date: 20041230
  Receipt Date: 20040524
  Transmission Date: 20050328
  Serious: Yes (Hospitalization)
  Sender: FDA-Public Use
  Company Number: 04-05-0780

PATIENT
  Age: 14 Year
  Sex: Male

DRUGS (2)
  1. CLOZAPINE [Suspect]
     Indication: BIPOLAR DISORDER
     Dosage: 200-300MG QD ORAL
     Route: 048
     Dates: start: 20040323, end: 20040511
  2. CLOZAPINE [Suspect]
     Indication: HALLUCINATION, AUDITORY
     Dosage: 200-300MG QD ORAL
     Route: 048
     Dates: start: 20040323, end: 20040511

REACTIONS (1)
  - DRUG INEFFECTIVE FOR UNAPPROVED INDICATION [None]
